FAERS Safety Report 9289275 (Version 2)
Quarter: 2013Q2

REPORT INFORMATION
  Report Type: Spontaneous
  Country: GB (occurrence: None)
  Receive Date: 20130510
  Receipt Date: 20130516
  Transmission Date: 20140414
  Serious: Yes (Other)
  Sender: FDA-Public Use
  Company Number: AUR-APL-2013-03850

PATIENT
  Age: 31 Year
  Sex: Female

DRUGS (2)
  1. LAMOTRIGINE (LAMOTRIGINE) [Suspect]
     Indication: EPILEPSY
     Dosage: 1 DOSAGE FORMS, 1 TOTAL
  2. LEVETIRACETAM (LEVETIRACETAM) [Concomitant]

REACTIONS (4)
  - Periorbital oedema [None]
  - Rash macular [None]
  - Eyelid oedema [None]
  - Eyelids pruritus [None]
